FAERS Safety Report 8589636 (Version 2)
Quarter: 2012Q4

REPORT INFORMATION
  Report Type: 
  Country: US (occurrence: US)
  Receive Date: 20120531
  Receipt Date: 20121031
  Transmission Date: 20130627
  Serious: No
  Sender: FDA-Public Use
  Company Number: US-RB-039639-12

PATIENT
  Sex: Female

DRUGS (6)
  1. SUBOXONE TABLET [Suspect]
     Route: 060
     Dates: start: 2008, end: 201006
  2. SUBOXONE TABLET [Suspect]
     Indication: DRUG DEPENDENCE
     Dosage: various tapered doses
     Route: 060
     Dates: start: 201006, end: 201011
  3. SUBOXONE TABLET [Suspect]
     Route: 065
  4. NICOTINE [Suspect]
     Indication: PRODUCT USED FOR UNKNOWN INDICATION
     Dosage: one pack/daily
     Route: 065
  5. WELLBUTRIN [Concomitant]
     Indication: DEPRESSION
     Dosage: Dosing details unknown
     Route: 065
     Dates: end: 201102
  6. IMITREX [Concomitant]
     Indication: MIGRAINE
     Dosage: 2 doses only during pregnancy
     Route: 065

REACTIONS (5)
  - Depression [Unknown]
  - Migraine [Unknown]
  - Underdose [Recovered/Resolved]
  - Exposure during pregnancy [Recovered/Resolved]
  - No adverse event [Recovered/Resolved]
